FAERS Safety Report 4798451-9 (Version None)
Quarter: 2005Q4

REPORT INFORMATION
  Report Type: 
  Country: None (occurrence: None)
  Receive Date: 20051014
  Receipt Date: 20050907
  Transmission Date: 20060501
  Serious: Yes (Hospitalization)
  Sender: FDA-Public Use
  Company Number: US-MERCK-0509USA01410

PATIENT
  Age: 84 Year
  Sex: Male

DRUGS (11)
  1. SINGULAIR [Suspect]
     Route: 048
     Dates: end: 20050817
  2. DIOVAN [Concomitant]
     Route: 065
  3. FUROSEMIDE [Concomitant]
     Route: 065
  4. ASPIRIN [Concomitant]
     Route: 065
  5. TIAZAC [Concomitant]
     Route: 065
  6. PROTONIX [Concomitant]
     Route: 065
  7. PLAVIX [Concomitant]
     Route: 065
  8. ZETIA [Concomitant]
     Route: 048
  9. COLCHICINE [Concomitant]
     Route: 065
  10. NABUMETONE [Concomitant]
     Route: 065
  11. [THERAPY UNSPECIFIED] [Concomitant]
     Route: 065

REACTIONS (11)
  - ALLERGIC GRANULOMATOUS ANGIITIS [None]
  - ARTERIOSCLEROSIS [None]
  - CARDIAC FAILURE CONGESTIVE [None]
  - CHRONIC OBSTRUCTIVE PULMONARY DISEASE [None]
  - COOMBS POSITIVE HAEMOLYTIC ANAEMIA [None]
  - GOUT [None]
  - OSTEOARTHRITIS [None]
  - PNEUMONITIS [None]
  - PURPURA [None]
  - RENAL FAILURE CHRONIC [None]
  - UPPER RESPIRATORY TRACT INFECTION [None]
